FAERS Safety Report 22165290 (Version 1)
Quarter: 2023Q2

REPORT INFORMATION
  Report Type: Spontaneous
  Country: US (occurrence: None)
  Receive Date: 20230403
  Receipt Date: 20230403
  Transmission Date: 20230721
  Serious: Yes (Hospitalization, Other)
  Sender: FDA-Public Use
  Company Number: US-MICRO LABS LIMITED-ML2023-01753

PATIENT
  Age: 21 Year
  Sex: Male

DRUGS (1)
  1. BUPROPION [Suspect]
     Active Substance: BUPROPION
     Indication: Product used for unknown indication

REACTIONS (6)
  - Cardiotoxicity [Unknown]
  - Unresponsive to stimuli [Unknown]
  - Cardiogenic shock [Recovering/Resolving]
  - Seizure [Recovering/Resolving]
  - Arrhythmia [Recovering/Resolving]
  - Overdose [Unknown]
